FAERS Safety Report 7418549-6 (Version None)
Quarter: 2011Q2

REPORT INFORMATION
  Report Type: 
  Country: None (occurrence: None)
  Receive Date: 20110415
  Receipt Date: 20110405
  Transmission Date: 20111010
  Serious: Yes (Hospitalization, Other)
  Sender: FDA-Public Use
  Company Number: PHHY2011FR29186

PATIENT
  Sex: Female

DRUGS (5)
  1. TERALITHE [Concomitant]
     Dosage: 400 MG, QD
     Dates: start: 20101012
  2. CELLCEPT [Suspect]
     Indication: MYELODYSPLASTIC SYNDROME
     Dosage: 1 MG, BID
     Dates: start: 20100924
  3. TERALITHE [Concomitant]
     Dosage: 1000 MG, QD
  4. SANDIMMUNE [Suspect]
     Indication: MYELODYSPLASTIC SYNDROME
     Dosage: 180 MG, QD
     Dates: start: 20100924
  5. SANDIMMUNE [Suspect]
     Dosage: 100 UNK, UNK

REACTIONS (5)
  - OVERDOSE [None]
  - RENAL FAILURE [None]
  - BLOOD CREATININE DECREASED [None]
  - TREMOR [None]
  - CONFUSIONAL STATE [None]
